FAERS Safety Report 4431290-7 (Version None)
Quarter: 2004Q3

REPORT INFORMATION
  Report Type: 
  Country: None (occurrence: None)
  Receive Date: 20040817
  Receipt Date: 20040804
  Transmission Date: 20050211
  Serious: Yes (Hospitalization)
  Sender: FDA-Public Use
  Company Number: 208229

PATIENT
  Age: 74 Year
  Sex: Male

DRUGS (11)
  1. METALYSE                (TENECTEPLASE) PWDR + SOLVENT [Suspect]
     Indication: MYOCARDIAL INFARCTION
     Dosage: 40 MG, SINGLE, INTRAVENOUS
     Route: 042
     Dates: start: 20040719, end: 20040719
  2. NITROGLYCERIN [Concomitant]
  3. MORPHINE [Concomitant]
  4. HEPARIN SODIUM [Concomitant]
  5. DOPAMINE HCL [Concomitant]
  6. ASPIRIN [Concomitant]
  7. CLOPIDOGREL (CLOPIDOGREL BISULFATE) [Concomitant]
  8. RAMIPRIL [Concomitant]
  9. ALPRAZOLAM [Concomitant]
  10. MAGNESIUM HYDROXIDE           (MAGNESIUM HYDROXIDE) [Concomitant]
  11. DULCOLAX [Concomitant]

REACTIONS (1)
  - THROMBOCYTOPENIA [None]
